FAERS Safety Report 24705235 (Version 1)
Quarter: 2024Q4

REPORT INFORMATION
  Report Type: Spontaneous
  Country: FR (occurrence: FR)
  Receive Date: 20241206
  Receipt Date: 20241206
  Transmission Date: 20250115
  Serious: Yes (Hospitalization)
  Sender: ACCORD
  Company Number: None

PATIENT
  Age: 58 Year
  Sex: Female
  Weight: 66.5 kg

DRUGS (3)
  1. CARBOPLATIN [Suspect]
     Active Substance: CARBOPLATIN
     Indication: Triple negative breast cancer
     Dosage: STRENGTH: 10 MG/ML, 1.50 AUC/TREATMENT
     Dates: start: 20240618, end: 20240730
  2. PACLITAXEL [Suspect]
     Active Substance: PACLITAXEL
     Indication: Triple negative breast cancer
     Dosage: STRENGTH: 6 MG/ML, 80 MG/M2 PER TREATMENT
     Dates: start: 20240618, end: 20240806
  3. PEMBROLIZUMAB [Suspect]
     Active Substance: PEMBROLIZUMAB
     Indication: Triple negative breast cancer
     Dates: start: 20240618, end: 20240730

REACTIONS (3)
  - Facial paralysis [Recovering/Resolving]
  - Ataxia [Recovering/Resolving]
  - Sensorimotor disorder [Recovering/Resolving]

NARRATIVE: CASE EVENT DATE: 20240819
